FAERS Safety Report 5772211-4 (Version None)
Quarter: 2008Q2

REPORT INFORMATION
  Report Type: 
  Country: None (occurrence: None)
  Receive Date: 20080611
  Receipt Date: 20080605
  Transmission Date: 20081010
  Serious: Yes (Disabling, Other)
  Sender: FDA-Public Use
  Company Number: GRT-2007-13243

PATIENT
  Age: 74 Year
  Sex: Male
  Weight: 99 kg

DRUGS (10)
  1. LIDOCAINE [Suspect]
     Indication: NEURALGIA
     Dosage: 2 PATCHES A DAY
     Dates: start: 20070803, end: 20070816
  2. AMIODARONE HCL [Concomitant]
  3. ENALAPRIL MALEATE [Concomitant]
  4. DICLOFENAC SODIUM [Concomitant]
  5. ASPIRIN [Concomitant]
  6. VERAPAMIL HYDROCHLORIDE [Concomitant]
  7. FENOTEROL HYDROBROMIDE [Concomitant]
  8. LEVOTHYROXINE SODIUM [Concomitant]
  9. GRYCERYL TRINITRATE [Concomitant]
  10. TIOTROPIUM BROMIDE [Concomitant]

REACTIONS (1)
  - PROSTATE CANCER [None]
